FAERS Safety Report 22872647 (Version 2)
Quarter: 2023Q4

REPORT INFORMATION
  Report Type: Spontaneous
  Country: US (occurrence: US)
  Receive Date: 20230828
  Receipt Date: 20231116
  Transmission Date: 20240110
  Serious: Yes (Hospitalization, Other)
  Sender: FDA-Public Use
  Company Number: US-GILEAD-2023-0640674

PATIENT
  Age: 65 Year
  Sex: Female

DRUGS (1)
  1. YESCARTA [Suspect]
     Active Substance: AXICABTAGENE CILOLEUCEL
     Indication: Diffuse large B-cell lymphoma
     Dosage: UNK
     Route: 042
     Dates: start: 20230815

REACTIONS (5)
  - Neurotoxicity [Unknown]
  - Amnesia [Unknown]
  - Seizure [Recovered/Resolved]
  - Memory impairment [Unknown]
  - Feeling abnormal [Not Recovered/Not Resolved]
